FAERS Safety Report 17124258 (Version 19)
Quarter: 2020Q1

REPORT INFORMATION
  Report Type: Report from Study
  Country: JP (occurrence: JP)
  Receive Date: 20191206
  Receipt Date: 20200309
  Transmission Date: 20200409
  Serious: Yes (Hospitalization)
  Sender: FDA-Public Use
  Company Number: JP-EISAI MEDICAL RESEARCH-EC-2019-066625

PATIENT
  Age: 63 Year
  Sex: Female
  Weight: 56.6 kg

DRUGS (12)
  1. LENVATINIB [Suspect]
     Active Substance: LENVATINIB
     Indication: ENDOMETRIAL CANCER
     Route: 048
     Dates: start: 20191119, end: 20191202
  2. ACETYLOL OINTMENT [Concomitant]
     Dates: start: 20191120
  3. LENVATINIB [Suspect]
     Active Substance: LENVATINIB
     Dosage: STARTING DOSE AT 10 MG, FLUCTUATED DOSAGE
     Route: 048
     Dates: start: 20191225
  4. PEMBROLIZUMAB. [Suspect]
     Active Substance: PEMBROLIZUMAB
     Indication: ENDOMETRIAL CANCER
     Route: 041
     Dates: start: 20191119, end: 20191119
  5. ATORVASTATIN [Concomitant]
     Active Substance: ATORVASTATIN
     Dates: start: 201101
  6. HACHIAZULE [Concomitant]
     Dates: start: 20191129
  7. NIFEDIPINE. [Concomitant]
     Active Substance: NIFEDIPINE
     Dates: start: 20191121, end: 20191202
  8. PEMBROLIZUMAB. [Suspect]
     Active Substance: PEMBROLIZUMAB
     Route: 041
     Dates: start: 20191213, end: 20191213
  9. PEMBROLIZUMAB. [Suspect]
     Active Substance: PEMBROLIZUMAB
     Route: 041
     Dates: start: 20200109
  10. PETROLATUM WHITE [Concomitant]
     Dates: start: 20191118
  11. LENVATINIB [Suspect]
     Active Substance: LENVATINIB
     Route: 048
     Dates: start: 20191213, end: 20191213
  12. DICLOFENAC [Concomitant]
     Active Substance: DICLOFENAC
     Dates: start: 20191129, end: 20191130

REACTIONS (2)
  - Drug eruption [Recovering/Resolving]
  - Myalgia [Recovering/Resolving]

NARRATIVE: CASE EVENT DATE: 20191203
